FAERS Safety Report 4945917-4 (Version None)
Quarter: 2006Q1

REPORT INFORMATION
  Report Type: 
  Country: None (occurrence: None)
  Receive Date: 20060203
  Receipt Date: 20011001
  Transmission Date: 20060701
  Serious: Yes (Other)
  Sender: FDA-Public Use
  Company Number: PHEH2001US08251

PATIENT
  Age: 2 Year
  Sex: Female

DRUGS (2)
  1. TEGRETOL [Suspect]
     Indication: CONVULSION
     Dosage: 75 MG,BID,ORAL ; 75 MG TID, ORAL
     Route: 048
     Dates: start: 20010925, end: 20010928
  2. TEGRETOL [Suspect]
     Indication: CONVULSION
     Dosage: 75 MG,BID,ORAL ; 75 MG TID, ORAL
     Route: 048
     Dates: start: 20010929

REACTIONS (5)
  - CONVULSION [None]
  - DRUG INEFFECTIVE [None]
  - DRUG LEVEL BELOW THERAPEUTIC [None]
  - SOCIAL AVOIDANT BEHAVIOUR [None]
  - SOMNOLENCE [None]
